FAERS Safety Report 12747428 (Version 1)
Quarter: 2016Q3

REPORT INFORMATION
  Report Type: Spontaneous
  Country: US (occurrence: US)
  Receive Date: 20160915
  Receipt Date: 20160915
  Transmission Date: 20161109
  Serious: No
  Sender: FDA-Public Use
  Company Number: US-JAZZ-2016-US-009755

PATIENT
  Sex: Female

DRUGS (14)
  1. PROVIGIL [Concomitant]
     Active Substance: MODAFINIL
  2. BIOTIN [Concomitant]
     Active Substance: BIOTIN
  3. XYREM [Suspect]
     Active Substance: SODIUM OXYBATE
     Dosage: DOSAGE ADJUSTMENTS
     Route: 048
     Dates: start: 201511, end: 201602
  4. CALCIUM ANTACID [Concomitant]
     Active Substance: CALCIUM CARBONATE
  5. MULTIVITAMINS [Concomitant]
     Active Substance: VITAMINS
  6. NORTRIPTYLINE HCL [Concomitant]
     Active Substance: NORTRIPTYLINE HYDROCHLORIDE
  7. XYREM [Suspect]
     Active Substance: SODIUM OXYBATE
     Dosage: 3 G, FIRST DOSE
     Route: 048
     Dates: start: 201602
  8. XYREM [Suspect]
     Active Substance: SODIUM OXYBATE
     Indication: NARCOLEPSY
     Dosage: 2.25 G, BID
     Route: 048
     Dates: start: 201510, end: 201511
  9. TRIMETHOPRIM. [Concomitant]
     Active Substance: TRIMETHOPRIM
  10. ARMOUR THYROID [Concomitant]
     Active Substance: THYROID, PORCINE
  11. FISH OIL DR [Concomitant]
  12. MICROGESTIN 21 [Concomitant]
  13. VITAMIN D2 [Concomitant]
     Active Substance: ERGOCALCIFEROL
  14. XYREM [Suspect]
     Active Substance: SODIUM OXYBATE
     Dosage: 3.5 G, SECOND DOSE
     Route: 048
     Dates: start: 201602

REACTIONS (1)
  - Nasopharyngitis [Unknown]
